FAERS Safety Report 4981284-8 (Version None)
Quarter: 2006Q1

REPORT INFORMATION
  Report Type: 
  Country: None (occurrence: None)
  Receive Date: 20060317
  Receipt Date: 20060329
  Transmission Date: 20060701
  Serious: Yes (Hospitalization)
  Sender: FDA-Public Use
  Company Number: THYM-10926

PATIENT
  Age: 46 Year
  Sex: Male

DRUGS (6)
  1. THYMOGLOBULIN [Suspect]
     Indication: RENAL TRANSPLANT
  2. THYMOGLOBULIN [Suspect]
  3. THYMOGLOBULIN [Suspect]
  4. HYDROCORTISONE HEMISUCCINATE [Concomitant]
  5. POLARAMINE [Concomitant]
  6. SOLUMEDRONE [Concomitant]

REACTIONS (3)
  - INFUSION RELATED REACTION [None]
  - MYALGIA [None]
  - PYREXIA [None]
